FAERS Safety Report 7121406-6 (Version None)
Quarter: 2010Q4

REPORT INFORMATION
  Report Type: 
  Country: None (occurrence: None)
  Receive Date: 20101124
  Receipt Date: 20101111
  Transmission Date: 20110411
  Serious: Yes (Hospitalization)
  Sender: FDA-Public Use
  Company Number: PHHY2009DE09333

PATIENT
  Age: 60 Year
  Sex: Male

DRUGS (13)
  1. DIOVAN [Suspect]
     Indication: HYPERTENSION
     Dosage: 80 MG, QD
     Route: 048
     Dates: end: 20081204
  2. ALDACTONE [Suspect]
     Indication: HEPATIC CIRRHOSIS
     Dosage: 200 MG, QD
     Route: 048
     Dates: end: 20081204
  3. ALDACTONE [Suspect]
     Dosage: 50 MG ONCE
     Route: 048
  4. AMLODIPINE [Concomitant]
     Indication: HYPERTENSION
     Dosage: 1 IN A DAY
     Route: 048
  5. FOLIC ACID [Concomitant]
     Indication: HEPATIC ENCEPHALOPATHY PROPHYLAXIS
     Dosage: 1 IN A DAY
     Route: 048
     Dates: start: 20081001
  6. FUROSEMIDE [Concomitant]
     Indication: HYPERTENSION
     Route: 048
  7. INSULIN ACTRAPHANE [Concomitant]
     Indication: TYPE 2 DIABETES MELLITUS
     Dosage: UNK
     Route: 058
     Dates: start: 20081001
  8. EMBOLEX [Concomitant]
     Indication: THROMBOSIS PROPHYLAXIS
     Dosage: UNK
     Route: 058
     Dates: start: 20081001
  9. OBSIDAN [Concomitant]
     Indication: HYPERTENSION
     Dosage: 25 MG, 3 IN A DAY
     Route: 048
     Dates: start: 20081001
  10. PANTOPRAZOLE SODIUM [Concomitant]
     Indication: VARICES OESOPHAGEAL
     Route: 048
  11. SORAFENIB [Concomitant]
     Indication: HEPATIC NEOPLASM MALIGNANT
     Dosage: 2 IN A DAY
     Route: 048
     Dates: start: 20081001
  12. VITAMIN B COMPLEX [Concomitant]
     Indication: HEPATIC ENCEPHALOPATHY PROPHYLAXIS
     Dosage: 1 DF, UNK
     Dates: start: 20081001
  13. ZINKIT [Concomitant]
     Indication: HEPATIC ENCEPHALOPATHY PROPHYLAXIS
     Dosage: 1 IN A DAY
     Route: 048
     Dates: start: 20081001

REACTIONS (4)
  - CEREBRAL ISCHAEMIA [None]
  - HAEMORRHAGE INTRACRANIAL [None]
  - HYPERKALAEMIA [None]
  - SOMNOLENCE [None]
